FAERS Safety Report 14868264 (Version 2)
Quarter: 2018Q2

REPORT INFORMATION
  Report Type: Spontaneous
  Country: ES (occurrence: ES)
  Receive Date: 20180509
  Receipt Date: 20180517
  Transmission Date: 20180711
  Serious: Yes (Life-Threatening, Hospitalization, Disabling, Other)
  Sender: FDA-Public Use
  Company Number: ES-INCYTE CORPORATION-2018IN004308

PATIENT

DRUGS (4)
  1. ACETYLSALICYLIC ACID [Concomitant]
     Active Substance: ASPIRIN
  2. JAKAVI [Suspect]
     Active Substance: RUXOLITINIB
     Indication: MYELOFIBROSIS
     Dosage: UNK
     Route: 048
  3. JAKAVI [Suspect]
     Active Substance: RUXOLITINIB
     Indication: POLYCYTHAEMIA VERA
     Dosage: 20 MG, BID
     Route: 065
     Dates: start: 20180404, end: 20180423
  4. ADIRO [Concomitant]
     Active Substance: ASPIRIN
     Indication: PRODUCT USED FOR UNKNOWN INDICATION
     Dosage: 100 MG, UNK
     Route: 065

REACTIONS (15)
  - Aspartate aminotransferase increased [Unknown]
  - Blood urea increased [Unknown]
  - Varices oesophageal [Recovered/Resolved]
  - Haemoglobin decreased [Recovered/Resolved]
  - Melaena [Recovered/Resolved]
  - Platelet count increased [Unknown]
  - Gastrointestinal haemorrhage [Recovered/Resolved]
  - Blood glucose increased [Unknown]
  - Monocyte count increased [Unknown]
  - PO2 decreased [Unknown]
  - Blood fibrinogen decreased [Unknown]
  - Haematocrit decreased [Unknown]
  - Neutrophil count increased [Unknown]
  - Haematemesis [Recovered/Resolved]
  - Blood lactate dehydrogenase increased [Unknown]

NARRATIVE: CASE EVENT DATE: 20180423
